FAERS Safety Report 15128488 (Version 3)
Quarter: 2018Q3

REPORT INFORMATION
  Report Type: Spontaneous
  Country: JP (occurrence: JP)
  Receive Date: 20180711
  Receipt Date: 20180724
  Transmission Date: 20181010
  Serious: Yes (Hospitalization, Other)
  Sender: FDA-Public Use
  Company Number: JP-009507513-1806JPN000865J

PATIENT
  Age: 75 Year
  Sex: Male
  Weight: 32 kg

DRUGS (3)
  1. JANUVIA [Suspect]
     Active Substance: SITAGLIPTIN PHOSPHATE
     Dosage: 100 MG, UNK
     Route: 048
     Dates: start: 20180214, end: 20180221
  2. JANUVIA [Suspect]
     Active Substance: SITAGLIPTIN PHOSPHATE
     Indication: BLOOD GLUCOSE INCREASED
     Dosage: 50 MG, UNK
     Route: 048
     Dates: start: 20180207, end: 20180213
  3. GENTACIN OINTMENT [Concomitant]
     Indication: CELLULITIS
     Dosage: UNK
     Route: 062

REACTIONS (2)
  - Pemphigoid [Recovering/Resolving]
  - Blister [Recovering/Resolving]

NARRATIVE: CASE EVENT DATE: 20180207
